FAERS Safety Report 9212931 (Version 1)
Quarter: 2013Q2

REPORT INFORMATION
  Report Type: Report from Study
  Country: JP (occurrence: JP)
  Receive Date: 20130405
  Receipt Date: 20130405
  Transmission Date: 20140414
  Serious: Yes (Death, Life-Threatening, Hospitalization, Other)
  Sender: FDA-Public Use
  Company Number: JP-AMGEN-JPNCT2013023689

PATIENT
  Age: 77 Year
  Sex: Male
  Weight: 66 kg

DRUGS (19)
  1. DARBEPOETIN ALFA [Suspect]
     Indication: NEPHROGENIC ANAEMIA
     Dosage: 60 MUG, Q4WK
     Route: 058
     Dates: start: 20101117, end: 20110406
  2. DARBEPOETIN ALFA [Suspect]
     Dosage: 60 MUG, QD
     Route: 058
     Dates: start: 20110422, end: 20110422
  3. DARBEPOETIN ALFA [Suspect]
     Dosage: 60 MUG, UNK
     Route: 058
     Dates: start: 20110511
  4. DARBEPOETIN ALFA [Suspect]
     Dosage: 90 MUG, QD
     Route: 058
     Dates: start: 20111111, end: 20111111
  5. DARBEPOETIN ALFA [Suspect]
     Dosage: 120 MUG, Q2WK
     Route: 058
     Dates: start: 20111130, end: 20120222
  6. DARBEPOETIN ALFA [Suspect]
     Dosage: 120 MUG, QD
     Route: 058
     Dates: start: 20120316, end: 20120316
  7. DARBEPOETIN ALFA [Suspect]
     Dosage: 120 MUG, QD
     Route: 058
     Dates: start: 20120403, end: 20120403
  8. LASIX [Concomitant]
     Dosage: UNK
     Route: 048
  9. ALDACTONE A [Concomitant]
     Dosage: UNK
     Route: 048
  10. TAKEPRON [Concomitant]
     Dosage: UNK
     Route: 048
  11. FLIVAS [Concomitant]
     Dosage: UNK
     Route: 048
  12. CERNILTON [Concomitant]
     Dosage: UNK
     Route: 048
  13. SENNOSIDE [Concomitant]
     Dosage: UNK
     Route: 048
  14. TRICOR [Concomitant]
     Dosage: UNK
     Route: 048
  15. ACTOS [Concomitant]
     Dosage: UNK
     Route: 048
  16. CELECOX [Concomitant]
     Dosage: UNK
     Route: 048
  17. DEPAS [Concomitant]
     Dosage: UNK
     Route: 048
  18. SELTOUCH [Concomitant]
     Dosage: UNK
     Route: 061
  19. BEZATOL SR [Concomitant]
     Dosage: UNK
     Route: 048

REACTIONS (4)
  - Pancreatitis acute [Recovered/Resolved]
  - Chronic respiratory failure [Fatal]
  - Pancreatitis acute [Recovered/Resolved]
  - Tinea pedis [Not Recovered/Not Resolved]
